FAERS Safety Report 8098384-9 (Version None)
Quarter: 2012Q1

REPORT INFORMATION
  Report Type: 
  Country: None (occurrence: None)
  Receive Date: 20120131
  Receipt Date: 20120120
  Transmission Date: 20120608
  Serious: Yes (Death)
  Sender: FDA-Public Use
  Company Number: US-JNJFOC-20110508534

PATIENT
  Sex: Female

DRUGS (3)
  1. EXTRA STRENGTH TYLENOL PM [Suspect]
     Indication: INFLUENZA
     Route: 048
  2. NYQUIL [Suspect]
     Indication: INFLUENZA
     Route: 048
  3. DULOXETIME HYDROCHLORIDE [Suspect]
     Indication: PRODUCT USED FOR UNKNOWN INDICATION
     Route: 048

REACTIONS (5)
  - MULTIPLE DRUG OVERDOSE ACCIDENTAL [None]
  - HEPATIC NECROSIS [None]
  - PULMONARY OEDEMA [None]
  - TUBULOINTERSTITIAL NEPHRITIS [None]
  - POISONING [None]
